FAERS Safety Report 4350214-4 (Version None)
Quarter: 2004Q2

REPORT INFORMATION
  Report Type: 
  Country: None (occurrence: None)
  Receive Date: 20040428
  Receipt Date: 20040413
  Transmission Date: 20050107
  Serious: Yes (Hospitalization, Disabling)
  Sender: FDA-Public Use
  Company Number: FRWYE105022APR03

PATIENT
  Age: 61 Year
  Sex: Male

DRUGS (8)
  1. RAPAMUNE [Suspect]
     Indication: PROPHYLAXIS AGAINST TRANSPLANT REJECTION
     Dosage: SEE IMAGE
     Route: 048
     Dates: start: 20021004, end: 20021129
  2. RAPAMUNE [Suspect]
     Indication: PROPHYLAXIS AGAINST TRANSPLANT REJECTION
     Dosage: SEE IMAGE
     Route: 048
     Dates: start: 20030101, end: 20030509
  3. CELLCEPT [Suspect]
     Indication: PROPHYLAXIS AGAINST TRANSPLANT REJECTION
     Dosage: 2 G DAILY
     Route: 048
     Dates: start: 20021003
  4. CORTICOSTEROIDS (CORTICOSTEROIDS, , 0) [Suspect]
     Indication: PROPHYLAXIS AGAINST TRANSPLANT REJECTION
     Dates: end: 20030101
  5. OMEPRAZOLE [Concomitant]
  6. VALACYCLOVIR HCL [Concomitant]
  7. BACTRIM [Concomitant]
  8. MOTILIUM [Concomitant]

REACTIONS (12)
  - ASCITES [None]
  - CHOLANGITIS [None]
  - CHOLESTASIS [None]
  - CONDITION AGGRAVATED [None]
  - CYTOLYTIC HEPATITIS [None]
  - CYTOMEGALOVIRUS INFECTION [None]
  - GENERAL PHYSICAL HEALTH DETERIORATION [None]
  - HEPATITIS [None]
  - HIATUS HERNIA [None]
  - INFLAMMATION [None]
  - PERITONEAL FLUID ANALYSIS ABNORMAL [None]
  - PERITONEAL HAEMORRHAGE [None]
